FAERS Safety Report 5898937-X (Version None)
Quarter: 2008Q3

REPORT INFORMATION
  Report Type: 
  Country: None (occurrence: None)
  Receive Date: 20080925
  Receipt Date: 20080916
  Transmission Date: 20090109
  Serious: Yes (Hospitalization)
  Sender: FDA-Public Use
  Company Number: FR-PFIZER INC-2008051685

PATIENT
  Sex: Male

DRUGS (3)
  1. MEDROL [Suspect]
     Indication: NON-SMALL CELL LUNG CANCER
     Dosage: DAILY DOSE:100MG
     Route: 048
     Dates: end: 20080516
  2. INNOHEP [Interacting]
     Indication: PULMONARY EMBOLISM
     Route: 058
     Dates: start: 20080410, end: 20080511
  3. LEXOMIL [Concomitant]
     Dosage: DAILY DOSE:.75MG
     Route: 048

REACTIONS (5)
  - ANAEMIA [None]
  - DRUG INTERACTION [None]
  - GASTRIC HAEMORRHAGE [None]
  - GASTRIC ULCER HAEMORRHAGE [None]
  - MELAENA [None]
